FAERS Safety Report 4322563-7 (Version None)
Quarter: 2004Q1

REPORT INFORMATION
  Report Type: 
  Country: None (occurrence: None)
  Receive Date: 20040322
  Receipt Date: 20040322
  Transmission Date: 20041129
  Serious: Yes (Other)
  Sender: FDA-Public Use
  Company Number: None

PATIENT
  Age: 77 Year
  Sex: Male
  Weight: 93.4 kg

DRUGS (26)
  1. MELOXICAM [Suspect]
  2. INSULIN NPH NUMAN 100 U/ML INJ NOVOLIN N [Concomitant]
  3. GABAPENTIN [Concomitant]
  4. DONEPEZIL HCL [Concomitant]
  5. ISOSORIBIDE MONONITRATE [Concomitant]
  6. LISINOPRIL [Concomitant]
  7. METOPROLOL TARTRATE [Concomitant]
  8. SIMVASTATIN [Concomitant]
  9. SENNA [Concomitant]
  10. FUROSEMIDE [Concomitant]
  11. FERROUS SULFATE TAB [Concomitant]
  12. PNEUMOVAX 23 [Concomitant]
  13. INFLUENZA VIRUS VACCINE [Concomitant]
  14. TUBERCULIN PPD [Concomitant]
  15. ASPIRIN [Concomitant]
  16. MELOXICAM [Concomitant]
  17. ACETAMINOPHEN AND HYDROCODONE BITARTRATE [Concomitant]
  18. HUMULIN N [Concomitant]
  19. GABAPENTIN [Concomitant]
  20. DONEPEZIL [Concomitant]
  21. ASCORBIC ACID [Concomitant]
  22. DONEPEZIL [Concomitant]
  23. ASCORBIC ACID [Concomitant]
  24. VITAMIN E [Concomitant]
  25. PIOGLITAZONE HCL [Concomitant]
  26. SIMVASTATIN [Concomitant]

REACTIONS (1)
  - GASTROINTESTINAL DISORDER [None]
